FAERS Safety Report 17295214 (Version 3)
Quarter: 2021Q2

REPORT INFORMATION
  Report Type: Spontaneous
  Country: US (occurrence: US)
  Receive Date: 20200121
  Receipt Date: 20210528
  Transmission Date: 20210716
  Serious: No
  Sender: FDA-Public Use
  Company Number: US-PFIZER INC-2020022718

PATIENT
  Age: 6 Decade
  Sex: Female
  Weight: 61.22 kg

DRUGS (3)
  1. DILANTIN [Suspect]
     Active Substance: PHENYTOIN
     Dosage: 300 MG, DAILY (1 TABLET IN AM AND 2 TABLETS IN PM)
     Route: 048
  2. DILANTIN [Suspect]
     Active Substance: PHENYTOIN
     Indication: EPILEPSY
     Dosage: 100 MG, 2X/DAY (100MG CAPSULE IN THE MORNING AND AT NIGHT)
     Route: 048
     Dates: start: 1986
  3. DILANTIN [Suspect]
     Active Substance: PHENYTOIN
     Indication: GENERALISED TONIC-CLONIC SEIZURE
     Dosage: 200 MG, 2X/DAY
     Route: 048
     Dates: start: 1988

REACTIONS (7)
  - Computerised tomogram abnormal [Unknown]
  - Feeling abnormal [Unknown]
  - Weight decreased [Unknown]
  - Drug ineffective [Unknown]
  - Drug level decreased [Unknown]
  - Nausea [Unknown]
  - Feeding disorder [Unknown]

NARRATIVE: CASE EVENT DATE: 1987
